FAERS Safety Report 15951219 (Version 1)
Quarter: 2019Q1

REPORT INFORMATION
  Report Type: Spontaneous
  Country: DE (occurrence: DE)
  Receive Date: 20190211
  Receipt Date: 20190211
  Transmission Date: 20190417
  Serious: Yes (Hospitalization)
  Sender: FDA-Public Use
  Company Number: PHHY2019DE028039

PATIENT
  Age: 27 Year
  Sex: Male
  Weight: 63 kg

DRUGS (3)
  1. SINUPRET [Suspect]
     Active Substance: HERBALS
     Indication: OROPHARYNGEAL PAIN
     Dosage: UNK
     Route: 048
  2. LOCABIOSOL [Suspect]
     Active Substance: FUSAFUNGINE
     Indication: UPPER RESPIRATORY TRACT INFECTION
     Dosage: UNK
     Route: 055
  3. ASPIRIN. [Suspect]
     Active Substance: ASPIRIN
     Indication: OROPHARYNGEAL PAIN
     Dosage: UNK
     Route: 048

REACTIONS (1)
  - Stevens-Johnson syndrome [Recovering/Resolving]

NARRATIVE: CASE EVENT DATE: 20010918
